FAERS Safety Report 17337182 (Version 2)
Quarter: 2020Q1

REPORT INFORMATION
  Report Type: Spontaneous
  Country: RS (occurrence: RS)
  Receive Date: 20200129
  Receipt Date: 20200207
  Transmission Date: 20200409
  Serious: Yes (Life-Threatening, Other)
  Sender: FDA-Public Use
  Company Number: NVSC2020RS020673

PATIENT
  Age: 36 Year
  Sex: Female

DRUGS (119)
  1. SODIUM CHLORIDE. [Concomitant]
     Active Substance: SODIUM CHLORIDE
     Indication: PRODUCT USED FOR UNKNOWN INDICATION
     Dosage: 100 ML (0.9%, 1)
     Route: 065
     Dates: start: 20170704
  2. SODIUM CHLORIDE. [Concomitant]
     Active Substance: SODIUM CHLORIDE
     Dosage: 100 ML (0.9%, 1)
     Route: 065
     Dates: start: 20170710
  3. DOPAMIN ADMEDA [Concomitant]
     Active Substance: DOPAMINE HYDROCHLORIDE
     Indication: PRODUCT USED FOR UNKNOWN INDICATION
     Dosage: 50 MG/ML (50 AMP, 5X50MG/5ML, 10)
     Route: 065
     Dates: start: 20170703
  4. DOPAMIN ADMEDA [Concomitant]
     Active Substance: DOPAMINE HYDROCHLORIDE
     Dosage: 50 MG/ML (50 AMP, 5X50MG/5ML, 10)
     Route: 065
     Dates: start: 20170704
  5. KALIUM CHLORID [Concomitant]
     Active Substance: POTASSIUM CHLORIDE
     Dosage: 10 G (PULV. 10X1 G, 3)
     Route: 065
     Dates: start: 20170708
  6. NIRMIN [Concomitant]
     Dosage: 5 MG/ML (INF. 50X5 MG/1,6 ML, 1)
     Route: 065
     Dates: start: 20170706
  7. LIDOCAIN [Concomitant]
     Active Substance: LIDOCAINE
     Indication: PRODUCT USED FOR UNKNOWN INDICATION
     Dosage: 40 MG/ML (AMP. 2% 50X40 MG/2 ML, 2)
     Route: 065
     Dates: start: 20170706
  8. SPIRONOLAKTON [Concomitant]
     Active Substance: SPIRONOLACTONE
     Indication: PRODUCT USED FOR UNKNOWN INDICATION
     Dosage: 25 MG (TBL 40X25 MG, 1)
     Route: 065
     Dates: start: 20170707
  9. LORAZEPAM. [Concomitant]
     Active Substance: LORAZEPAM
     Dosage: 2.5 MG (TBL 20X2,5 MG, .500)
     Route: 065
     Dates: start: 20170710
  10. LORAZEPAM. [Concomitant]
     Active Substance: LORAZEPAM
     Dosage: 2.5 MG 9TBL 20X2,5 MG, .500)
     Route: 065
     Dates: start: 20170713
  11. ZORKAPTIL [Concomitant]
     Indication: PRODUCT USED FOR UNKNOWN INDICATION
     Dosage: 25 MG (TBL 40X25 MG, 2)
     Route: 065
     Dates: start: 20170708
  12. PROPOFOL LIPURO [Concomitant]
     Active Substance: PROPOFOL
     Dosage: 10 MG/ML (1% INJ 1X50 ML)
     Route: 065
     Dates: start: 20170704
  13. SODIUM CHLORIDE. [Concomitant]
     Active Substance: SODIUM CHLORIDE
     Dosage: 100 ML (0.9%, 1)
     Route: 065
     Dates: start: 20170706
  14. SODIUM CHLORIDE. [Concomitant]
     Active Substance: SODIUM CHLORIDE
     Dosage: 100 ML (0.9%, 1)
     Route: 065
     Dates: start: 20170706
  15. SODIUM CHLORIDE. [Concomitant]
     Active Substance: SODIUM CHLORIDE
     Dosage: 100 ML (0.9%, 1)
     Route: 065
     Dates: start: 20170714
  16. NATRIUM BICARBONAT [Concomitant]
     Dosage: 100 ML (8.4%, 1X100ML, 3)
     Route: 065
     Dates: start: 20170704
  17. KALIUM CHLORID [Concomitant]
     Active Substance: POTASSIUM CHLORIDE
     Dosage: 20 ML (AMP 7.4% 1X20ML, 2)
     Route: 065
     Dates: start: 20170706
  18. AZARAN [Concomitant]
     Active Substance: CEFTRIAXONE SODIUM
     Dosage: 50 G (INJ IV/IM 50X1 G, 1)
     Route: 065
     Dates: start: 20170705
  19. ALVOLAMID [Concomitant]
     Dosage: 5 MG/ML  (10X100 ML, 5MG/ML, 1)
     Route: 065
     Dates: start: 20170705
  20. ALVOLAMID [Concomitant]
     Dosage: 5 MG/ML  (10X100 ML, 5MG/ML, 1)
     Route: 065
     Dates: start: 20170708
  21. MIDAZOLAM HYDROCHLORIDE. [Concomitant]
     Active Substance: MIDAZOLAM HYDROCHLORIDE
     Dosage: 15 MG/ML (10X15MG/3ML, 1)
     Route: 065
     Dates: start: 20170706
  22. PARACETAMOL ^BERLIN-CHEMIE^ [Concomitant]
     Indication: PRODUCT USED FOR UNKNOWN INDICATION
     Dosage: 10 MG/ML (INF. 10X100 ML (10MG/ML), 1)
     Route: 065
     Dates: start: 20170706
  23. NIRMIN [Concomitant]
     Dosage: 5 MG/ML (INF. 50X5 MG/1,6 ML, 4)
     Route: 065
     Dates: start: 20170709
  24. ACURMIL [Concomitant]
     Indication: PRODUCT USED FOR UNKNOWN INDICATION
     Dosage: 50 MG/ML (AMP. 5X50MG/5ML, 2)
     Route: 065
     Dates: start: 20170706
  25. SPIRONOLAKTON [Concomitant]
     Active Substance: SPIRONOLACTONE
     Dosage: 25 MG (TBL 40X25 MG, 4)
     Route: 065
     Dates: start: 20170708
  26. ALBIOMIN [Concomitant]
     Indication: PRODUCT USED FOR UNKNOWN INDICATION
     Dosage: UNK (20% 1X50 ML+ BIOTEST, 1)
     Route: 065
     Dates: start: 20170708
  27. MIPECID [Concomitant]
     Dosage: 1000 MG (INJ. 10X(500+500 MG), 1)
     Route: 065
     Dates: start: 20170714
  28. PROPOFOL LIPURO [Concomitant]
     Active Substance: PROPOFOL
     Dosage: 10 MG/ML (1% INH 1X50 ML)
     Route: 065
     Dates: start: 20170706
  29. SODIUM CHLORIDE. [Concomitant]
     Active Substance: SODIUM CHLORIDE
     Dosage: 100 ML (0.9%, 1)
     Route: 065
     Dates: start: 20170710
  30. SODIUM CHLORIDE. [Concomitant]
     Active Substance: SODIUM CHLORIDE
     Dosage: 100 ML (0.9%, 1)
     Route: 065
     Dates: start: 20170711
  31. SODIUM CHLORIDE. [Concomitant]
     Active Substance: SODIUM CHLORIDE
     Dosage: 100 ML (0.9%, 1)
     Route: 065
     Dates: start: 20170712
  32. KALIUM CHLORID [Concomitant]
     Active Substance: POTASSIUM CHLORIDE
     Dosage: 20 ML (AMP 7.4% 1X20ML, 2)
     Route: 065
     Dates: start: 20170708
  33. KALIUM CHLORID [Concomitant]
     Active Substance: POTASSIUM CHLORIDE
     Dosage: 10 G (PULV. 10X1G, 3)
     Route: 065
     Dates: start: 20170710
  34. AZARAN [Concomitant]
     Active Substance: CEFTRIAXONE SODIUM
     Dosage: 50 G (INJ IV/IM 50X1 G, 1)
     Route: 065
     Dates: start: 20170707
  35. AZARAN [Concomitant]
     Active Substance: CEFTRIAXONE SODIUM
     Dosage: 50 G (INJ IV/IM 50X1 G, 2)
     Route: 065
     Dates: start: 20170708
  36. ALVOLAMID [Concomitant]
     Indication: PRODUCT USED FOR UNKNOWN INDICATION
     Dosage: 5 MG/ML (10X100 ML, 5MG/ML, 1)
     Route: 065
     Dates: start: 20170704
  37. MIDAZOLAM HYDROCHLORIDE. [Concomitant]
     Active Substance: MIDAZOLAM HYDROCHLORIDE
     Dosage: 15 MG/ML (10X15MG/3ML, 1)
     Route: 065
     Dates: start: 20170706
  38. PARACETAMOL ^BERLIN-CHEMIE^ [Concomitant]
     Dosage: 10 UNK (INF. 10X100 ML (10MG/ML), 1)
     Route: 065
     Dates: start: 20170706
  39. PARACETAMOL ^BERLIN-CHEMIE^ [Concomitant]
     Dosage: 10 MG/ML (INF. 10X100 ML (10MG/ML), 1)
     Route: 065
     Dates: start: 20170708
  40. NIRMIN [Concomitant]
     Dosage: 5 MG/ML (INF. 50X5 MG/1,6 ML, 4)
     Route: 065
     Dates: start: 20170707
  41. SEVORANE [Concomitant]
     Active Substance: SEVOFLURANE
     Indication: PRODUCT USED FOR UNKNOWN INDICATION
     Dosage: 250 ML (1X250 ML, .040)
     Route: 065
  42. TENSEC [Concomitant]
     Dosage: 5 MG (FILM TBL 30X5 MG, .500)
     Route: 065
     Dates: start: 20170713
  43. ALBIOMIN [Concomitant]
     Dosage: UNK (20% 1X50 ML+ BIOTEST, 2)
     Route: 065
     Dates: start: 20170710
  44. LORAZEPAM. [Concomitant]
     Active Substance: LORAZEPAM
     Dosage: 2.5 MG (TBL 20X2,5 MG, .500)
     Route: 065
     Dates: start: 20170712
  45. MIPECID [Concomitant]
     Dosage: 1000 MG (INJ. 10X(500+500 MG), 1)
     Route: 065
     Dates: start: 20170711
  46. MIPECID [Concomitant]
     Dosage: 1000 MG (INJ. 10X(500+500 MG), 1)
     Route: 065
     Dates: start: 20170713
  47. PROPOFOL LIPURO [Concomitant]
     Active Substance: PROPOFOL
     Dosage: 10 MG/ML (1 INJ 5X20 ML)
     Route: 065
     Dates: start: 20170706
  48. SODIUM CHLORIDE. [Concomitant]
     Active Substance: SODIUM CHLORIDE
     Dosage: 100 ML (0.9%, 1)
     Route: 065
     Dates: start: 20170713
  49. AZARAN [Concomitant]
     Active Substance: CEFTRIAXONE SODIUM
     Dosage: 50 G (INJ IV/IM 50X1 G, 1)
     Route: 065
     Dates: start: 20170705
  50. AZARAN [Concomitant]
     Active Substance: CEFTRIAXONE SODIUM
     Dosage: 50 G (INJ IV/IM 50X1 G, 2)
     Route: 065
     Dates: start: 20170707
  51. ALVOLAMID [Concomitant]
     Dosage: 5 MG/ML  (10X100 ML, 5MG/ML, 1)
     Route: 065
     Dates: start: 20170707
  52. ALBUNORM [Concomitant]
     Active Substance: ALBUMIN HUMAN
     Dosage: UNK (20%50ML 1X1 KOM, 84)
     Route: 065
     Dates: start: 20170706
  53. MIDAZOLAM HYDROCHLORIDE. [Concomitant]
     Active Substance: MIDAZOLAM HYDROCHLORIDE
     Indication: PRODUCT USED FOR UNKNOWN INDICATION
     Dosage: 15 MG/ML (10X15MG/3ML, 1)
     Route: 065
     Dates: start: 20170706
  54. LASIX [Concomitant]
     Active Substance: FUROSEMIDE
     Dosage: 20 MG/ML (AMP. 6X20MG/2ML, 1)
     Route: 065
     Dates: start: 20170706
  55. LASIX [Concomitant]
     Active Substance: FUROSEMIDE
     Dosage: 20 MG/ML (6X20MG/2ML, 2)
     Route: 065
     Dates: start: 20170707
  56. MIPECID [Concomitant]
     Dosage: 1000 MG 9INJ. 10X(500+500 MG), 1)
     Route: 065
     Dates: start: 20170712
  57. DILTIAZEM. [Suspect]
     Active Substance: DILTIAZEM
     Indication: INTENTIONAL SELF-INJURY
     Dosage: 90 MG (TOTAL INGESTED DOSE OF 8.1 G, 50 TABLETS)
     Route: 065
  58. PROPOFOL LIPURO [Concomitant]
     Active Substance: PROPOFOL
     Indication: PRODUCT USED FOR UNKNOWN INDICATION
     Dosage: 10 MG/ML (1% INJ 1X50 ML)
     Route: 065
     Dates: start: 20170703
  59. SODIUM CHLORIDE. [Concomitant]
     Active Substance: SODIUM CHLORIDE
     Dosage: 100 ML (0.9%, 1)
     Route: 065
     Dates: start: 20170709
  60. NORADRENALINA TARTRATO [Concomitant]
     Dosage: 2 MG/ML (10X2MG/1ML, 8)
     Route: 065
     Dates: start: 20170704
  61. NATRIUM CHLORIDUM [Concomitant]
     Active Substance: SODIUM CHLORIDE
     Indication: PRODUCT USED FOR UNKNOWN INDICATION
     Dosage: 10 ML (10% INF. RASTVOR 1X1ML, 20)
     Route: 065
     Dates: start: 20170704
  62. KALIUM CHLORID [Concomitant]
     Active Substance: POTASSIUM CHLORIDE
     Indication: PRODUCT USED FOR UNKNOWN INDICATION
     Dosage: 20 ML (AMP 7.4% 1X20ML, 6)
     Route: 065
     Dates: start: 20170704
  63. KALIUM CHLORID [Concomitant]
     Active Substance: POTASSIUM CHLORIDE
     Dosage: 20 ML(AMP 7.4% 1X20ML, 2)
     Route: 065
     Dates: start: 20170705
  64. AZARAN [Concomitant]
     Active Substance: CEFTRIAXONE SODIUM
     Indication: PRODUCT USED FOR UNKNOWN INDICATION
     Dosage: 50 G (INJ IV/IM 50X1 G, 1)
     Route: 065
     Dates: start: 20170704
  65. ALBUNORM [Concomitant]
     Active Substance: ALBUMIN HUMAN
     Indication: PRODUCT USED FOR UNKNOWN INDICATION
     Dosage: UNK (20%50ML 1X1 KOM, 8 )
     Route: 065
     Dates: start: 20170705
  66. ALBUNORM [Concomitant]
     Active Substance: ALBUMIN HUMAN
     Dosage: UNK (20%50ML 1X1 KOM, 4)
     Route: 065
     Dates: start: 20170707
  67. PARACETAMOL ^BERLIN-CHEMIE^ [Concomitant]
     Dosage: 10 MG/ML (INF. 10X100 ML (10MG/ML), 1)
     Route: 065
     Dates: start: 20170707
  68. LORAZEPAM. [Concomitant]
     Active Substance: LORAZEPAM
     Dosage: 2.5 MG (TBL 20X2,5 MG, .500)
     Route: 065
     Dates: start: 20170710
  69. LORAZEPAM. [Concomitant]
     Active Substance: LORAZEPAM
     Dosage: 2.5 MG (TBL 20X2,5 MG, .500)
     Route: 065
     Dates: start: 20170713
  70. MONOPRIL [Concomitant]
     Active Substance: FOSINOPRIL SODIUM
     Indication: PRODUCT USED FOR UNKNOWN INDICATION
     Dosage: 10 MG (TBL 28X10 MG, 2)
     Route: 065
     Dates: start: 20170709
  71. PROPOFOL LIPURO [Concomitant]
     Active Substance: PROPOFOL
     Dosage: 10 MG/ML (1% INJ 1X50 ML)
     Route: 065
     Dates: start: 20170705
  72. SODIUM CHLORIDE. [Concomitant]
     Active Substance: SODIUM CHLORIDE
     Dosage: 100 ML (0.9%, 1)
     Route: 065
     Dates: start: 20170713
  73. SODIUM CHLORIDE. [Concomitant]
     Active Substance: SODIUM CHLORIDE
     Dosage: 100 ML (0.9%, 1)
     Route: 065
     Dates: start: 20170714
  74. NATRIUM BICARBONAT [Concomitant]
     Indication: PRODUCT USED FOR UNKNOWN INDICATION
     Dosage: 100 ML (8.4% 1X100 ML, 1)
     Route: 065
     Dates: start: 20170703
  75. KALIUM CHLORID [Concomitant]
     Active Substance: POTASSIUM CHLORIDE
     Dosage: 10 G (PULV. 10X1 G, 2)
     Route: 065
     Dates: start: 20170707
  76. KALIUM CHLORID [Concomitant]
     Active Substance: POTASSIUM CHLORIDE
     Dosage: 20 ML (AMP 7.4% 1X20ML, 2)
     Route: 065
     Dates: start: 20170709
  77. ALVOLAMID [Concomitant]
     Dosage: 5 MG/ML  (10X100 ML, 5MG/ML, 1)
     Route: 065
     Dates: start: 20170706
  78. PARACETAMOL ^BERLIN-CHEMIE^ [Concomitant]
     Dosage: 10 MG/ML (INF. 10X100 ML (10MG/ML), 1)
     Route: 065
     Dates: start: 20170709
  79. NIRMIN [Concomitant]
     Indication: PRODUCT USED FOR UNKNOWN INDICATION
     Dosage: 5 MG/ML (INF. 50X5 MG/1,6 ML, 1)
     Route: 065
     Dates: start: 20170706
  80. SUFENTA [Concomitant]
     Active Substance: SUFENTANIL CITRATE
     Indication: PRODUCT USED FOR UNKNOWN INDICATION
     Dosage: 0.25 MG/ML 9AMP 5X0,25 MG/5ML, 1)
     Route: 065
     Dates: start: 20170706
  81. TENSEC [Concomitant]
     Dosage: 5 MG (FILM TBL 30X5 MG, .500)
     Route: 065
     Dates: start: 20170708
  82. MIPECID [Concomitant]
     Indication: PRODUCT USED FOR UNKNOWN INDICATION
     Dosage: 1000 MG (INJ. 10X(500+500 MG), 1)
     Route: 065
     Dates: start: 20170710
  83. PROPOFOL LIPURO [Concomitant]
     Active Substance: PROPOFOL
     Dosage: 10 MG/ML (1% INJ 1X50 ML)
     Route: 065
     Dates: start: 20170704
  84. PROPOFOL LIPURO [Concomitant]
     Active Substance: PROPOFOL
     Dosage: 10 MG/ML (1% INJ 1X50 ML)
     Route: 065
     Dates: start: 20170704
  85. PROPOFOL LIPURO [Concomitant]
     Active Substance: PROPOFOL
     Dosage: 10 MG/ML (1% INJ 1X50 ML)
     Route: 065
     Dates: start: 20170705
  86. SODIUM CHLORIDE. [Concomitant]
     Active Substance: SODIUM CHLORIDE
     Dosage: 100 ML (0.9%, 1)
     Route: 065
     Dates: start: 20170705
  87. SODIUM CHLORIDE. [Concomitant]
     Active Substance: SODIUM CHLORIDE
     Dosage: 100 ML (0.9%, 1)
     Route: 065
     Dates: start: 20170710
  88. NORADRENALINA TARTRATO [Concomitant]
     Indication: PRODUCT USED FOR UNKNOWN INDICATION
     Dosage: 2 MG (10X2MG/1ML, 8)
     Route: 065
     Dates: start: 20170703
  89. KALIUM CHLORID [Concomitant]
     Active Substance: POTASSIUM CHLORIDE
     Dosage: 20 ML (AMP 7.4% 1X20ML, 4)
     Route: 065
     Dates: start: 20200707
  90. HEPARIN [Concomitant]
     Active Substance: HEPARIN SODIUM
     Indication: PRODUCT USED FOR UNKNOWN INDICATION
     Dosage: UNK (INJ 1 ML 5X5000 I.J., 2)
     Route: 065
     Dates: start: 20170704
  91. AZARAN [Concomitant]
     Active Substance: CEFTRIAXONE SODIUM
     Dosage: 50 G (INJ IV/IM 50X1 G, 1)
     Route: 065
     Dates: start: 20170706
  92. AZARAN [Concomitant]
     Active Substance: CEFTRIAXONE SODIUM
     Dosage: 50 G (INJ IV/IM 50X1 G, 1)
     Route: 065
     Dates: start: 20170706
  93. PARACETAMOL ^BERLIN-CHEMIE^ [Concomitant]
     Dosage: 10 MG/ML (INF. 10X100 ML (10MG/ML), 1)
     Route: 065
     Dates: start: 20170710
  94. NIRMIN [Concomitant]
     Dosage: 5 MG/ML (INF. 50X5 MG/1,6 ML, 2)
     Route: 065
     Dates: start: 20170706
  95. LASIX [Concomitant]
     Active Substance: FUROSEMIDE
     Indication: PRODUCT USED FOR UNKNOWN INDICATION
     Dosage: 20 MG/ML (AMP. 6X20MG/2ML, 2)
     Route: 065
     Dates: start: 20170705
  96. LASIX [Concomitant]
     Active Substance: FUROSEMIDE
     Dosage: 20 MG/ML (6X20MG/2ML, 1)
     Route: 065
     Dates: start: 20170707
  97. TENSEC [Concomitant]
     Dosage: 5 MG (FILM TBL 30X5 MG, .500)
     Route: 065
     Dates: start: 20170711
  98. TENSEC [Concomitant]
     Dosage: 5 MG (FILM TBL 30X5 MG, .500)
     Route: 065
     Dates: start: 20170712
  99. LORAZEPAM. [Concomitant]
     Active Substance: LORAZEPAM
     Dosage: 2.5 MG (TBL 20X2,5 MG, .500)
     Route: 065
     Dates: start: 20190709
  100. LORAZEPAM. [Concomitant]
     Active Substance: LORAZEPAM
     Dosage: 2.5 MG 9TBL 20X2,5 MG, 1)
     Route: 065
     Dates: start: 20170712
  101. SODIUM CHLORIDE. [Concomitant]
     Active Substance: SODIUM CHLORIDE
     Dosage: 100 ML (0.9 %, 1)
     Route: 065
     Dates: start: 20170704
  102. SODIUM CHLORIDE. [Concomitant]
     Active Substance: SODIUM CHLORIDE
     Dosage: 100 ML (0.9%, 1)
     Route: 065
     Dates: start: 20170709
  103. CALCIO GLUCONATO [Concomitant]
     Active Substance: CALCIUM GLUCONATE
     Indication: PRODUCT USED FOR UNKNOWN INDICATION
     Dosage: 1000 MG/ML (10% 5X1000MG/10 ML, 9)
     Route: 065
     Dates: start: 20170704
  104. HEPARIN [Concomitant]
     Active Substance: HEPARIN SODIUM
     Dosage: UNK (INJ 1 ML 5X5000 I.J., 3)
     Route: 065
     Dates: start: 20170704
  105. HEPARIN [Concomitant]
     Active Substance: HEPARIN SODIUM
     Dosage: UNK (INJ 1 ML 5X5000 I.J., 1)
     Route: 065
     Dates: start: 20170705
  106. HEPARIN [Concomitant]
     Active Substance: HEPARIN SODIUM
     Dosage: UNK (INJ 1 ML 5X5000 I.J., 1)
     Route: 065
     Dates: start: 20170706
  107. LASIX [Concomitant]
     Active Substance: FUROSEMIDE
     Dosage: 20 MG/ML (AMP. 6X20MG/2ML, 1)
     Route: 065
     Dates: start: 20170706
  108. LASIX [Concomitant]
     Active Substance: FUROSEMIDE
     Dosage: 20 MG/ML (6X20MG/2ML, 1)
     Route: 065
     Dates: start: 20170708
  109. TENSEC [Concomitant]
     Indication: PRODUCT USED FOR UNKNOWN INDICATION
     Dosage: 5 MG (FILM TBL 30X5 MG, .500)
     Route: 065
     Dates: start: 20170706
  110. TENSEC [Concomitant]
     Dosage: 5 MG (FILM TBL 30X5 MG, .500)
     Route: 065
     Dates: start: 20170707
  111. TENSEC [Concomitant]
     Dosage: 5 MG (FILM TBL 30X5 MG, .500)
     Route: 065
     Dates: start: 20170709
  112. TENSEC [Concomitant]
     Dosage: 5 MG (FILM TBL 30X5 MG, .500)
     Route: 065
     Dates: start: 20170710
  113. LORAZEPAM. [Concomitant]
     Active Substance: LORAZEPAM
     Indication: PRODUCT USED FOR UNKNOWN INDICATION
     Dosage: 2.5 MG (TBL 20X2,5 MG, 1)
     Route: 065
     Dates: start: 20170708
  114. LORAZEPAM. [Concomitant]
     Active Substance: LORAZEPAM
     Dosage: 2.5 MG (TBL 20X2,5 MG, 1)
     Route: 065
     Dates: start: 20170709
  115. LORAZEPAM. [Concomitant]
     Active Substance: LORAZEPAM
     Dosage: 2.5 MG (TBL 20X2,5 MG, .500)
     Route: 065
     Dates: start: 20170710
  116. MIPECID [Concomitant]
     Dosage: 1000 MG (INJ. 10X(500+500 MG), 1)
     Route: 065
     Dates: start: 20170712
  117. MIPECID [Concomitant]
     Dosage: 1000 MG (INJ. 10X(500+500 MG), 1)
     Route: 065
     Dates: start: 20170713
  118. MIPECID [Concomitant]
     Dosage: 1000 MG (INJ. 10X(500+500 MG), 1)
     Route: 065
     Dates: start: 20170714
  119. METOPROLOL. [Suspect]
     Active Substance: METOPROLOL
     Indication: SUICIDE ATTEMPT
     Dosage: 100 MG (50 TABLETS)
     Route: 048

REACTIONS (7)
  - Multiple organ dysfunction syndrome [Recovered/Resolved]
  - Suicide attempt [Unknown]
  - Hypotension [Recovered/Resolved]
  - Intentional overdose [Unknown]
  - Distributive shock [Recovered/Resolved]
  - Cardiogenic shock [Recovered/Resolved]
  - Poisoning [Recovered/Resolved]

NARRATIVE: CASE EVENT DATE: 20170703
